FAERS Safety Report 5049313-3 (Version None)
Quarter: 2006Q2

REPORT INFORMATION
  Report Type: 
  Country: None (occurrence: None)
  Receive Date: 20060613
  Receipt Date: 20060518
  Transmission Date: 20061013
  Serious: No
  Sender: FDA-Public Use
  Company Number: 2006-00491

PATIENT
  Age: 69 Year
  Sex: Male

DRUGS (10)
  1. VELCADE [Suspect]
     Indication: DRUG USE FOR UNKNOWN INDICATION
     Dosage: 1.30 MG/M2. IV BOLUS
     Route: 040
     Dates: start: 20060224, end: 20060224
  2. VELCADE [Suspect]
     Indication: DRUG USE FOR UNKNOWN INDICATION
     Dosage: 1.30 MG/M2. IV BOLUS
     Route: 040
     Dates: start: 20060307, end: 20060307
  3. VELCADE [Suspect]
     Indication: DRUG USE FOR UNKNOWN INDICATION
     Dosage: 1.30 MG/M2. IV BOLUS
     Route: 040
     Dates: start: 20060314, end: 20060314
  4. ANZEMET [Suspect]
     Indication: DRUG USE FOR UNKNOWN INDICATION
     Dates: start: 20060224, end: 20060224
  5. ANZEMET [Suspect]
     Indication: DRUG USE FOR UNKNOWN INDICATION
     Dates: start: 20060307, end: 20060307
  6. ANZEMET [Suspect]
     Indication: DRUG USE FOR UNKNOWN INDICATION
     Dates: start: 20060310, end: 20060310
  7. DECADRON [Suspect]
     Indication: DRUG USE FOR UNKNOWN INDICATION
     Dates: start: 20060224, end: 20060224
  8. DECADRON [Suspect]
     Indication: DRUG USE FOR UNKNOWN INDICATION
     Dates: start: 20060307, end: 20060307
  9. DECADRON [Suspect]
     Indication: DRUG USE FOR UNKNOWN INDICATION
     Dates: start: 20060310, end: 20060310
  10. ALOXI (PALONOSTRON HCL) [Suspect]
     Indication: DRUG USE FOR UNKNOWN INDICATION
     Dates: start: 20060314, end: 20060314

REACTIONS (1)
  - URTICARIA [None]
